FAERS Safety Report 7938858-1 (Version None)
Quarter: 2011Q4

REPORT INFORMATION
  Report Type: 
  Country: None (occurrence: None)
  Receive Date: 20111124
  Receipt Date: 20111121
  Transmission Date: 20120403
  Serious: No
  Sender: FDA-Public Use
  Company Number: US-BIOGENIDEC-2011BI044581

PATIENT
  Age: 19 Year
  Sex: Female

DRUGS (1)
  1. AVONEX [Suspect]
     Indication: MULTIPLE SCLEROSIS
     Route: 030
     Dates: start: 20110410

REACTIONS (7)
  - FEELING HOT [None]
  - GALLBLADDER PAIN [None]
  - MUSCLE RUPTURE [None]
  - INFLUENZA LIKE ILLNESS [None]
  - MOOD SWINGS [None]
  - DRUG EFFECT DECREASED [None]
  - EMOTIONAL DISORDER [None]
